FAERS Safety Report 8358397-6 (Version None)
Quarter: 2012Q2

REPORT INFORMATION
  Report Type: 
  Country: None (occurrence: None)
  Receive Date: 20120514
  Receipt Date: 20110720
  Transmission Date: 20120825
  Serious: Yes (Other)
  Sender: FDA-Public Use
  Company Number: US-ALEXION PHARMACEUTICALS INC.-A201100701

PATIENT
  Sex: Female

DRUGS (10)
  1. SOLIRIS [Suspect]
     Indication: PAROXYSMAL NOCTURNAL HAEMOGLOBINURIA
     Dosage: 600 MG, QW
     Route: 042
     Dates: start: 20100211, end: 20100301
  2. NEURONTIN [Concomitant]
     Dosage: UNK
  3. ASPIRIN [Concomitant]
     Dosage: UNK
  4. SIMVASTATIN [Concomitant]
     Dosage: UNK
  5. SOLIRIS [Suspect]
     Dosage: 900 MG, Q2W
     Route: 042
     Dates: start: 20100312
  6. PREDNISONE [Concomitant]
     Dosage: UNK
  7. BACTRIM [Suspect]
     Indication: URINARY TRACT INFECTION
  8. ISORBID [Concomitant]
     Dosage: UNK
  9. AMITRIPTYLINE HCL [Concomitant]
     Dosage: UNK
  10. COUMADIN [Concomitant]
     Dosage: UNK

REACTIONS (3)
  - URINARY TRACT INFECTION [None]
  - TRANSIENT ISCHAEMIC ATTACK [None]
  - DRUG LEVEL CHANGED [None]
